FAERS Safety Report 5782508-X (Version None)
Quarter: 2008Q2

REPORT INFORMATION
  Report Type: 
  Country: None (occurrence: None)
  Receive Date: 20080623
  Receipt Date: 20080422
  Transmission Date: 20081010
  Serious: No
  Sender: FDA-Public Use
  Company Number: US-AMGEN-KDL275678

PATIENT
  Sex: Female

DRUGS (7)
  1. ARANESP [Suspect]
     Indication: RENAL FAILURE CHRONIC
     Route: 058
     Dates: start: 20080101
  2. VICODIN [Concomitant]
  3. NORVASC [Concomitant]
  4. ZEMPLAR [Concomitant]
     Dates: start: 20080101
  5. LASIX [Concomitant]
  6. METOPROLOL [Concomitant]
  7. LEVOXYL [Concomitant]

REACTIONS (2)
  - MUSCLE SPASMS [None]
  - PAIN IN EXTREMITY [None]
